FAERS Safety Report 14917422 (Version 2)
Quarter: 2018Q2

REPORT INFORMATION
  Report Type: Report from Study
  Country: NL (occurrence: NL)
  Receive Date: 20180521
  Receipt Date: 20180620
  Transmission Date: 20180711
  Serious: Yes (Hospitalization, Other)
  Sender: FDA-Public Use
  Company Number: NL-ROCHE-1689270

PATIENT
  Age: 62 Year
  Sex: Female
  Weight: 107 kg

DRUGS (29)
  1. NAPROXEN. [Suspect]
     Active Substance: NAPROXEN
     Indication: PRODUCT USED FOR UNKNOWN INDICATION
     Route: 065
  2. FLUOROURACIL. [Suspect]
     Active Substance: FLUOROURACIL
     Route: 042
     Dates: start: 20160330
  3. OXALIPLATIN. [Suspect]
     Active Substance: OXALIPLATIN
     Indication: COLORECTAL CANCER METASTATIC
     Dosage: MOST RECENT DOSE TAKEN ON 29/DEC/2015
     Route: 042
     Dates: start: 20151210
  4. OXALIPLATIN. [Suspect]
     Active Substance: OXALIPLATIN
     Dosage: AT 15:35
     Route: 042
     Dates: start: 20160128
  5. PAROXETINE. [Concomitant]
     Active Substance: PAROXETINE
     Route: 065
     Dates: start: 20150814
  6. FLUOROURACIL. [Suspect]
     Active Substance: FLUOROURACIL
     Dosage: AT 15:35?TOTAL DOSE (6050 MG)
     Route: 040
     Dates: start: 20160128
  7. FLUOROURACIL. [Suspect]
     Active Substance: FLUOROURACIL
     Route: 042
     Dates: start: 20160128
  8. FRAGMIN [Concomitant]
     Active Substance: DALTEPARIN SODIUM
     Indication: EMBOLISM
     Route: 065
     Dates: start: 20160216
  9. LORAZEPAM. [Concomitant]
     Active Substance: LORAZEPAM
     Indication: ANXIETY
     Route: 065
     Dates: start: 20160206
  10. BEVACIZUMAB. [Suspect]
     Active Substance: BEVACIZUMAB
     Dosage: AT 14:50
     Route: 042
     Dates: start: 20160128
  11. VEMURAFENIB. [Suspect]
     Active Substance: VEMURAFENIB
     Indication: COLORECTAL CANCER METASTATIC
     Dosage: MOST RECENT DOSE PRIOR TO SAE- 17/JAN/2017
     Route: 048
     Dates: start: 20160511
  12. CALCIUM FOLINATE [Suspect]
     Active Substance: LEUCOVORIN CALCIUM
     Indication: COLORECTAL CANCER METASTATIC
     Dosage: MOST RECENT DOSE TAKEN ON 29/DEC/2015
     Route: 042
     Dates: start: 20151210
  13. EUTHYROX [Concomitant]
     Active Substance: LEVOTHYROXINE SODIUM
     Route: 065
     Dates: start: 20150630
  14. LORAZEPAM. [Concomitant]
     Active Substance: LORAZEPAM
     Route: 065
     Dates: start: 20170206
  15. BEVACIZUMAB. [Suspect]
     Active Substance: BEVACIZUMAB
     Indication: COLORECTAL CANCER METASTATIC
     Dosage: LAST DOSE ADMINISTERED: 525 MG?MOST RECENT DOSE TAKEN ON 29/DEC/2015
     Route: 042
     Dates: start: 20151210
  16. FLUOROURACIL. [Suspect]
     Active Substance: FLUOROURACIL
     Dosage: MOST RECENT DOSE PRIOR TO SAE- 04/JAN/2017
     Route: 042
     Dates: start: 20160511
  17. CETUXIMAB. [Suspect]
     Active Substance: CETUXIMAB
     Indication: COLORECTAL CANCER METASTATIC
     Dosage: MOST RECENT DOSE PRIOR TO SAE- 04/JAN/2017
     Route: 042
     Dates: start: 20160511
  18. CALCIUM FOLINATE [Suspect]
     Active Substance: LEUCOVORIN CALCIUM
     Route: 042
     Dates: start: 20160330
  19. FLUOROURACIL. [Suspect]
     Active Substance: FLUOROURACIL
     Indication: COLORECTAL CANCER METASTATIC
     Dosage: MOST RECENT DOSE TAKEN ON 29/DEC/2015
     Route: 042
     Dates: start: 20151210
  20. OXALIPLATIN. [Suspect]
     Active Substance: OXALIPLATIN
     Route: 042
     Dates: start: 20160330
  21. AUGMENTIN [Concomitant]
     Active Substance: AMOXICILLIN\CLAVULANATE POTASSIUM
     Indication: NEUTROPENIA
     Route: 065
     Dates: start: 20160214, end: 20160222
  22. CALCIUM FOLINATE [Suspect]
     Active Substance: LEUCOVORIN CALCIUM
     Dosage: AT 15:35
     Route: 042
     Dates: start: 20160128
  23. CALCIUM FOLINATE [Suspect]
     Active Substance: LEUCOVORIN CALCIUM
     Route: 042
     Dates: start: 20170104
  24. EPREX [Concomitant]
     Active Substance: ERYTHROPOIETIN
     Route: 065
     Dates: start: 20151012
  25. METOPROLOL. [Concomitant]
     Active Substance: METOPROLOL
     Route: 065
     Dates: start: 20151020
  26. OMEPRAZOL [Concomitant]
     Active Substance: OMEPRAZOLE
     Route: 065
     Dates: start: 20150814
  27. NADROPARINE [Concomitant]
     Active Substance: NADROPARIN
     Route: 065
     Dates: start: 20151112, end: 20151224
  28. BEVACIZUMAB. [Suspect]
     Active Substance: BEVACIZUMAB
     Route: 042
     Dates: start: 20160330
  29. CEFTAZIDIM [Concomitant]
     Active Substance: CEFTAZIDIME
     Indication: NEUTROPENIA
     Route: 065
     Dates: start: 20160212, end: 20160214

REACTIONS (3)
  - Vomiting [Recovered/Resolved]
  - Nausea [Recovered/Resolved]
  - Pulmonary embolism [Recovered/Resolved]

NARRATIVE: CASE EVENT DATE: 20151229
